FAERS Safety Report 5051721-1 (Version None)
Quarter: 2006Q3

REPORT INFORMATION
  Report Type: 
  Country: None (occurrence: None)
  Receive Date: 20060712
  Receipt Date: 20060712
  Transmission Date: 20061208
  Serious: Yes (Other)
  Sender: FDA-Public Use
  Company Number: None

PATIENT
  Age: 59 Year
  Sex: Female
  Weight: 49.8957 kg

DRUGS (2)
  1. KENALOG-40 [Suspect]
     Indication: MACULAR OEDEMA
     Dosage: 4 MG ONCE INTRAVITREAL
     Dates: start: 20060706
  2. KENALOG-40 [Suspect]

REACTIONS (2)
  - ENDOPHTHALMITIS [None]
  - VISUAL ACUITY REDUCED [None]
